FAERS Safety Report 21293851 (Version 1)
Quarter: 2022Q3

REPORT INFORMATION
  Report Type: Spontaneous
  Country: US (occurrence: US)
  Receive Date: 20220905
  Receipt Date: 20220905
  Transmission Date: 20221027
  Serious: No
  Sender: FDA-Public Use
  Company Number: US-drreddys-SPO/USA/22/0153589

PATIENT
  Age: 17 Year
  Sex: Female

DRUGS (2)
  1. ACCUTANE [Suspect]
     Active Substance: ISOTRETINOIN
     Indication: Acne
     Dates: start: 20220601, end: 20220731
  2. ACCUTANE [Suspect]
     Active Substance: ISOTRETINOIN
     Dosage: ON 11 AUGUST 2022, ONE DAY DOSAGE OF ACCUTANE
     Dates: start: 20220811

REACTIONS (2)
  - Product administration interrupted [Unknown]
  - Product dose omission issue [Unknown]

NARRATIVE: CASE EVENT DATE: 20220807
